FAERS Safety Report 20933557 (Version 1)
Quarter: 2022Q2

REPORT INFORMATION
  Report Type: Spontaneous
  Country: US (occurrence: None)
  Receive Date: 20220607
  Receipt Date: 20220607
  Transmission Date: 20220721
  Serious: No
  Sender: FDA-Public Use
  Company Number: None

PATIENT
  Age: 71 Year
  Sex: Male

DRUGS (2)
  1. EVEROLIMUS [Suspect]
     Active Substance: EVEROLIMUS
     Dosage: FREQUENCY : DAILY;?
     Route: 048
  2. LENVIMA [Suspect]
     Active Substance: LENVATINIB

REACTIONS (6)
  - Diarrhoea [None]
  - Weight decreased [None]
  - Product dose omission in error [None]
  - Therapy interrupted [None]
  - Impaired healing [None]
  - Pain [None]

NARRATIVE: CASE EVENT DATE: 20220607
